FAERS Safety Report 8819322 (Version 1)
Quarter: 2012Q4

REPORT INFORMATION
  Report Type: 
  Country: US (occurrence: US)
  Receive Date: 20121001
  Receipt Date: 20121001
  Transmission Date: 20130627
  Serious: No
  Sender: FDA-Public Use
  Company Number: US-009507513-1209USA010535

PATIENT
  Sex: Male

DRUGS (4)
  1. PEGINTRON [Suspect]
     Indication: HEPATITIS C
     Dosage: UNK
     Dates: start: 20050805, end: 20060203
  2. REBETOL [Suspect]
     Indication: HEPATITIS C
     Dosage: UNK
     Route: 048
     Dates: start: 20000601, end: 20001201
  3. REBETOL [Suspect]
     Dosage: UNK
     Route: 048
     Dates: start: 20050805, end: 20060203
  4. INTRON A [Concomitant]
     Indication: HEPATITIS C
     Dosage: UNK
     Dates: start: 20000601, end: 20001201

REACTIONS (1)
  - Hepatitis C [Unknown]
